FAERS Safety Report 5664056-0 (Version None)
Quarter: 2008Q1

REPORT INFORMATION
  Report Type: 
  Country: None (occurrence: None)
  Receive Date: 20080314
  Receipt Date: 20080310
  Transmission Date: 20080703
  Serious: Yes (Death)
  Sender: FDA-Public Use
  Company Number: JP-TEVA-165572ISR

PATIENT
  Age: 30 Year
  Sex: Male

DRUGS (3)
  1. CISPLATIN [Suspect]
     Indication: GERM CELL CANCER
  2. ETOPOSIDE [Suspect]
     Indication: GERM CELL CANCER
  3. BLEOMYCIN [Suspect]

REACTIONS (3)
  - ADENOCARCINOMA [None]
  - METASTASIS [None]
  - TERATOMA [None]
